FAERS Safety Report 13576518 (Version 3)
Quarter: 2017Q2

REPORT INFORMATION
  Report Type: Report from Study
  Country: AR (occurrence: AR)
  Receive Date: 20170524
  Receipt Date: 20170607
  Transmission Date: 20170830
  Serious: Yes (Hospitalization)
  Sender: FDA-Public Use
  Company Number: PHHY2017AR076581

PATIENT
  Age: 77 Year
  Sex: Male

DRUGS (2)
  1. EZETIMIBE. [Concomitant]
     Active Substance: EZETIMIBE
     Indication: PRODUCT USED FOR UNKNOWN INDICATION
     Dosage: 10 OT, UNK
     Route: 065
  2. EXFORGE [Suspect]
     Active Substance: AMLODIPINE BESYLATE\VALSARTAN
     Indication: HYPERTENSION
     Dosage: 1 DF, QD (AMLODIPINE 5MG/HYDROCHLOROTHIAZIDE 12.5MG/VALSARTAN160MG)
     Route: 065
     Dates: start: 2005

REACTIONS (5)
  - Osteoarthritis [Recovering/Resolving]
  - Coronary artery disease [Recovered/Resolved]
  - Dehydration [Recovered/Resolved]
  - Phobia [Recovered/Resolved]
  - Syncope [Recovered/Resolved]

NARRATIVE: CASE EVENT DATE: 20160131
